FAERS Safety Report 10896775 (Version 1)
Quarter: 2015Q1

REPORT INFORMATION
  Report Type: Spontaneous
  Country: GB (occurrence: GB)
  Receive Date: 20150309
  Receipt Date: 20150309
  Transmission Date: 20150721
  Serious: Yes (Other)
  Sender: FDA-Public Use
  Company Number: GB-TEVA-545724ISR

PATIENT
  Age: 43 Year
  Sex: Male

DRUGS (1)
  1. PAROXETINE [Suspect]
     Active Substance: PAROXETINE\PAROXETINE HYDROCHLORIDE
     Dosage: 30 MILLIGRAM DAILY;
     Route: 065

REACTIONS (6)
  - Blunted affect [Unknown]
  - Emotional disorder [Unknown]
  - Alcoholism [Unknown]
  - Loss of employment [Unknown]
  - Abnormal behaviour [Unknown]
  - Emotional poverty [Unknown]
